FAERS Safety Report 11776649 (Version 1)
Quarter: 2015Q4

REPORT INFORMATION
  Report Type: Report from Study
  Country: US (occurrence: US)
  Receive Date: 20151125
  Receipt Date: 20151125
  Transmission Date: 20160304
  Serious: No
  Sender: FDA-Public Use
  Company Number: PHEH2015US023243

PATIENT
  Sex: Female

DRUGS (5)
  1. NORTRIPTYLINE [Concomitant]
     Active Substance: NORTRIPTYLINE
     Indication: PRODUCT USED FOR UNKNOWN INDICATION
     Dosage: 50 MG, QHS
     Route: 065
  2. GILENYA [Suspect]
     Active Substance: FINGOLIMOD HYDROCHLORIDE
     Indication: MULTIPLE SCLEROSIS
     Dosage: 0.5 MG, QD
     Route: 048
     Dates: start: 20131216
  3. LYRICA [Concomitant]
     Active Substance: PREGABALIN
     Indication: PRODUCT USED FOR UNKNOWN INDICATION
     Dosage: 150 MG, BID
     Route: 065
  4. BACLOFEN. [Concomitant]
     Active Substance: BACLOFEN
     Indication: PRODUCT USED FOR UNKNOWN INDICATION
     Dosage: 10 MG, (TID) PRN
     Route: 065
  5. TREXIMET [Concomitant]
     Active Substance: NAPROXEN SODIUM\SUMATRIPTAN SUCCINATE
     Indication: PRODUCT USED FOR UNKNOWN INDICATION
     Dosage: 75/500MG (A TOTAL OF 9 PILLS EVERY MONTH)
     Route: 065

REACTIONS (16)
  - Back pain [Unknown]
  - Neck pain [Unknown]
  - Balance disorder [Unknown]
  - Nausea [Unknown]
  - Headache [Unknown]
  - Hypoaesthesia [Unknown]
  - Paraesthesia [Unknown]
  - Abdominal pain [Unknown]
  - Migraine [Unknown]
  - Gait disturbance [Unknown]
  - Dizziness [Unknown]
  - Multiple sclerosis relapse [Unknown]
  - Dysstasia [Unknown]
  - Sensory disturbance [Unknown]
  - Feeling abnormal [Unknown]
  - Vomiting [Unknown]
